FAERS Safety Report 8418790-X (Version None)
Quarter: 2012Q2

REPORT INFORMATION
  Report Type: 
  Country: None (occurrence: None)
  Receive Date: 20120607
  Receipt Date: 20120530
  Transmission Date: 20120825
  Serious: Yes (Death)
  Sender: FDA-Public Use
  Company Number: JP-ROCHE-1075527

PATIENT
  Age: 83 Year
  Sex: Male

DRUGS (3)
  1. HEPARIN SODIUM [Suspect]
     Indication: EMBOLIC STROKE
     Dates: start: 20120417, end: 20120420
  2. ACTIVASE [Suspect]
     Indication: EMBOLIC STROKE
     Dosage: DOSE 23.4 MIU/DAY
     Route: 042
     Dates: start: 20120417, end: 20120417
  3. RADICUT [Suspect]
     Indication: EMBOLIC STROKE
     Dates: start: 20120417, end: 20120420

REACTIONS (1)
  - HAEMORRHAGIC CEREBRAL INFARCTION [None]
